FAERS Safety Report 23179040 (Version 1)
Quarter: 2023Q4

REPORT INFORMATION
  Report Type: Spontaneous
  Country: FR (occurrence: FR)
  Receive Date: 20231113
  Receipt Date: 20231113
  Transmission Date: 20240110
  Serious: Yes (Life-Threatening)
  Sender: FDA-Public Use
  Company Number: None

PATIENT
  Age: 11 Month
  Sex: Female
  Weight: 7.9 kg

DRUGS (7)
  1. VINCRISTINE SULFATE [Suspect]
     Active Substance: VINCRISTINE SULFATE
     Indication: Neuroblastoma
     Dosage: 1.7 MG, SINGLE
     Route: 042
     Dates: start: 20230803, end: 20230902
  2. CARBOPLATIN [Suspect]
     Active Substance: CARBOPLATIN
     Indication: Neuroblastoma
     Dosage: 138 MG, SINGLE
     Route: 042
     Dates: start: 20230717, end: 20230719
  3. CARBOPLATIN [Suspect]
     Active Substance: CARBOPLATIN
     Dosage: 215 MG, SINGLE
     Route: 042
     Dates: start: 20230902, end: 20230902
  4. ETOPOSIDE [Suspect]
     Active Substance: ETOPOSIDE
     Indication: Neuroblastoma
     Dosage: 301 MG, SINGLE
     Route: 042
     Dates: start: 20230717, end: 20230902
  5. CISPLATIN [Suspect]
     Active Substance: CISPLATIN
     Indication: Neuroblastoma
     Dosage: 11 MG, SINGLE
     Route: 042
     Dates: start: 20230803, end: 20230823
  6. CYCLOPHOSPHAMIDE [Suspect]
     Active Substance: CYCLOPHOSPHAMIDE
     Indication: Neuroblastoma
     Dosage: 580 MG, SINGLE
     Route: 042
     Dates: start: 20230813, end: 20230814
  7. LENOGRASTIM [Suspect]
     Active Substance: LENOGRASTIM
     Indication: Chemotherapy cytokine prophylaxis
     Dosage: 5 UG/KG
     Route: 058
     Dates: start: 20230905, end: 20230910

REACTIONS (3)
  - Thrombotic microangiopathy [Recovered/Resolved]
  - Off label use [Unknown]
  - Off label use [Unknown]

NARRATIVE: CASE EVENT DATE: 20230717
